FAERS Safety Report 20709734 (Version 1)
Quarter: 2022Q2

REPORT INFORMATION
  Report Type: Spontaneous
  Country: US (occurrence: None)
  Receive Date: 20220413
  Receipt Date: 20220413
  Transmission Date: 20220721
  Serious: Yes (Disabling)
  Sender: FDA-Public Use
  Company Number: None

PATIENT
  Age: 24 Year
  Sex: Female
  Weight: 67.5 kg

DRUGS (10)
  1. AIMOVIG [Suspect]
     Active Substance: ERENUMAB-AOOE
     Indication: Migraine
     Dates: start: 20220311
  2. MAGNESIUM [Concomitant]
     Active Substance: MAGNESIUM
  3. Women^s multi-vitamins [Concomitant]
  4. 24 hour anti-histamines [Concomitant]
  5. PEPTO-BISMOL [Concomitant]
     Active Substance: BISMUTH SUBSALICYLATE
  6. NAPROXEN [Concomitant]
     Active Substance: NAPROXEN
  7. GINGER [Concomitant]
     Active Substance: GINGER
  8. CANDESARTAN [Concomitant]
     Active Substance: CANDESARTAN
  9. COMPAZINE [Concomitant]
     Active Substance: PROCHLORPERAZINE MALEATE
  10. BENADRYL [Concomitant]
     Active Substance: DIPHENHYDRAMINE HYDROCHLORIDE

REACTIONS (9)
  - Nausea [None]
  - Abdominal pain [None]
  - Vomiting [None]
  - Migraine [None]
  - Fall [None]
  - Dyskinesia [None]
  - Dyspnoea [None]
  - Hypoaesthesia [None]
  - Tremor [None]

NARRATIVE: CASE EVENT DATE: 20220316
